FAERS Safety Report 14032297 (Version 1)
Quarter: 2017Q4

REPORT INFORMATION
  Report Type: Spontaneous
  Country: FR (occurrence: FR)
  Receive Date: 20171003
  Receipt Date: 20171003
  Transmission Date: 20180321
  Serious: Yes (Other)
  Sender: FDA-Public Use
  Company Number: FR-MERCK KGAA-2028539

PATIENT
  Sex: Female

DRUGS (1)
  1. NOVOTHYROX [Suspect]
     Active Substance: LEVOTHYROXINE SODIUM

REACTIONS (11)
  - Arrhythmia [None]
  - Unevaluable event [None]
  - Arthralgia [None]
  - Fatigue [None]
  - Scab [None]
  - Depression [None]
  - Weight increased [None]
  - Hot flush [None]
  - Dizziness [None]
  - Anxiety [None]
  - Myalgia [None]
